FAERS Safety Report 14505366 (Version 1)
Quarter: 2018Q1

REPORT INFORMATION
  Report Type: Spontaneous
  Country: US (occurrence: US)
  Receive Date: 20180207
  Receipt Date: 20180207
  Transmission Date: 20180509
  Serious: Yes (Other)
  Sender: FDA-Public Use
  Company Number: None

PATIENT

DRUGS (5)
  1. FUROSEMIDE. [Concomitant]
     Active Substance: FUROSEMIDE
  2. METOPROLOL. [Concomitant]
     Active Substance: METOPROLOL
  3. AMITRIPTYLINE [Suspect]
     Active Substance: AMITRIPTYLINE
  4. CLONIDINE. [Suspect]
     Active Substance: CLONIDINE
  5. TRAMADOL. [Concomitant]
     Active Substance: TRAMADOL

REACTIONS (3)
  - Pain [None]
  - Heart rate increased [None]
  - Blood pressure increased [None]
